FAERS Safety Report 9689285 (Version 1)
Quarter: 2013Q4

REPORT INFORMATION
  Report Type: Spontaneous
  Country: CA (occurrence: CA)
  Receive Date: 20131114
  Receipt Date: 20131114
  Transmission Date: 20140711
  Serious: Yes (Death)
  Sender: FDA-Public Use
  Company Number: CA-B.I. PHARMACEUTICALS,INC./RIDGEFIELD-2013-BI-37356CN

PATIENT
  Age: 66 Year
  Sex: Male

DRUGS (5)
  1. TRAJENTA [Suspect]
     Route: 065
  2. AVAPRO [Concomitant]
  3. CRESTOR [Concomitant]
  4. LEVEMIR PENFILL [Concomitant]
     Route: 058
  5. METFORMIN [Concomitant]

REACTIONS (1)
  - Myocardial infarction [Fatal]
